FAERS Safety Report 8694913 (Version 3)
Quarter: 2012Q4

REPORT INFORMATION
  Report Type: 
  Country: US (occurrence: US)
  Receive Date: 20120731
  Receipt Date: 20121022
  Transmission Date: 20130627
  Serious: Yes (Hospitalization)
  Sender: FDA-Public Use
  Company Number: PHEH2012US014820

PATIENT
  Age: 57 Year
  Sex: Female
  Weight: 87.98 kg

DRUGS (7)
  1. GILENYA [Suspect]
     Indication: MULTIPLE SCLEROSIS
     Dosage: 0.5 mg, QD
     Route: 048
     Dates: start: 20120619
  2. NUEDEXTA [Interacting]
     Dosage: UNK UKN, UNK
  3. CETRIZINE [Concomitant]
     Dosage: 5 mg, UNK
  4. PAXIL [Concomitant]
     Dosage: 20 mg, UNK
  5. TRENTAL [Concomitant]
     Dosage: 400 mg, UNK
  6. PREVACID [Concomitant]
     Dosage: 30 mg, UNK
  7. LISINOPRIL [Concomitant]
     Dosage: 30 mg, UNK

REACTIONS (5)
  - Fatigue [Unknown]
  - Back pain [Unknown]
  - Chest discomfort [Unknown]
  - Dyspnoea [Unknown]
  - Drug interaction [Unknown]
